FAERS Safety Report 5958304-7 (Version None)
Quarter: 2008Q4

REPORT INFORMATION
  Report Type: 
  Country: None (occurrence: None)
  Receive Date: 20081119
  Receipt Date: 20081112
  Transmission Date: 20090506
  Serious: Yes (Hospitalization)
  Sender: FDA-Public Use
  Company Number: ES-MERCK-0811ESP00016

PATIENT
  Sex: Female

DRUGS (5)
  1. ISENTRESS [Suspect]
     Indication: HIV INFECTION
     Route: 048
     Dates: start: 20080901, end: 20081001
  2. ISENTRESS [Suspect]
     Route: 048
     Dates: start: 20081101, end: 20081101
  3. TRUVADA [Concomitant]
     Indication: HIV INFECTION
     Route: 048
     Dates: start: 20080501, end: 20081001
  4. TRUVADA [Concomitant]
     Route: 048
     Dates: start: 20081101
  5. SUSTIVA [Concomitant]
     Indication: HIV INFECTION
     Route: 048
     Dates: start: 20080501, end: 20080901

REACTIONS (7)
  - DIARRHOEA [None]
  - GENERAL PHYSICAL HEALTH DETERIORATION [None]
  - IMMUNE RECONSTITUTION SYNDROME [None]
  - METABOLIC ACIDOSIS [None]
  - PLATELET COUNT DECREASED [None]
  - RASH [None]
  - VOMITING [None]
